FAERS Safety Report 25280848 (Version 1)
Quarter: 2025Q2

REPORT INFORMATION
  Report Type: Spontaneous
  Country: US (occurrence: US)
  Receive Date: 20250508
  Receipt Date: 20250508
  Transmission Date: 20250717
  Serious: No
  Sender: ABBVIE
  Company Number: US-ABBVIE-6267311

PATIENT
  Age: 51 Year

DRUGS (1)
  1. UPADACITINIB [Suspect]
     Active Substance: UPADACITINIB
     Indication: Colitis ulcerative
     Route: 048
     Dates: start: 20250423, end: 20250427

REACTIONS (5)
  - Alopecia [Unknown]
  - Blood blister [Unknown]
  - Haemorrhage [Unknown]
  - Contusion [Recovering/Resolving]
  - Blister rupture [Unknown]

NARRATIVE: CASE EVENT DATE: 20250101
